FAERS Safety Report 6095660-6 (Version None)
Quarter: 2009Q1

REPORT INFORMATION
  Report Type: 
  Country: None (occurrence: None)
  Receive Date: 20090227
  Receipt Date: 20080519
  Transmission Date: 20090719
  Serious: No
  Sender: FDA-Public Use
  Company Number: A0728540A

PATIENT
  Age: 48 Year
  Sex: Female

DRUGS (3)
  1. LAMICTAL [Suspect]
     Route: 048
     Dates: start: 20040901
  2. THYROID MEDICATION [Concomitant]
  3. HEADACHE MEDICATION [Concomitant]

REACTIONS (2)
  - CHEST PAIN [None]
  - RASH [None]
